FAERS Safety Report 5201296-9 (Version None)
Quarter: 2007Q1

REPORT INFORMATION
  Report Type: 
  Country: None (occurrence: None)
  Receive Date: 20070108
  Receipt Date: 20061229
  Transmission Date: 20070707
  Serious: Yes (Other)
  Sender: FDA-Public Use
  Company Number: FR-ELI_LILLY_AND_COMPANY-FR200612004579

PATIENT
  Age: 71 Year
  Sex: Female

DRUGS (3)
  1. FORTEO [Suspect]
     Indication: OSTEOPOROSIS
     Dosage: 20 UG, DAILY (1/D)
     Route: 058
     Dates: start: 20061125
  2. OMEPRAZOLE [Concomitant]
     Indication: HIATUS HERNIA
     Dosage: 1 D/F, DAILY (1/D)
     Route: 048
  3. CORTISONE ACETATE [Concomitant]
     Dosage: 20 MG, DAILY (1/D)
     Route: 048

REACTIONS (2)
  - DYSPEPSIA [None]
  - PATHOLOGICAL FRACTURE [None]
